FAERS Safety Report 4690688-2 (Version None)
Quarter: 2005Q2

REPORT INFORMATION
  Report Type: 
  Country: None (occurrence: None)
  Receive Date: 20050613
  Receipt Date: 20050601
  Transmission Date: 20051028
  Serious: Yes (Hospitalization, Other)
  Sender: FDA-Public Use
  Company Number: 2005083175

PATIENT
  Age: 54 Year
  Sex: Male
  Weight: 122.4712 kg

DRUGS (10)
  1. ZYRTEC [Suspect]
     Indication: HYPERSENSITIVITY
     Dosage: 10 MG (10 MG, 1 IN 1 D), ORAL
     Route: 048
     Dates: start: 20020101
  2. TOPROL-XL [Concomitant]
  3. AVAPRO [Concomitant]
  4. LOPID [Concomitant]
  5. ACTOS [Concomitant]
  6. FLONASE [Concomitant]
  7. VITAMIN B12 (VITAMIN B12) [Concomitant]
  8. POTASSIUM (POTASSIUM) [Concomitant]
  9. FUROSEMIDE [Concomitant]
  10. ALTACE [Concomitant]

REACTIONS (6)
  - CARDIAC FLUTTER [None]
  - EYE SWELLING [None]
  - FEELING ABNORMAL [None]
  - HEADACHE [None]
  - HISTAMINE LEVEL INCREASED [None]
  - RHINORRHOEA [None]
